FAERS Safety Report 20136875 (Version 1)
Quarter: 2021Q4

REPORT INFORMATION
  Report Type: Spontaneous
  Country: US (occurrence: US)
  Receive Date: 20211201
  Receipt Date: 20211201
  Transmission Date: 20220303
  Serious: No
  Sender: FDA-Public Use
  Company Number: US-MYLANLABS-2021M1075342

PATIENT
  Sex: Male
  Weight: 71 kg

DRUGS (2)
  1. VALSARTAN [Suspect]
     Active Substance: VALSARTAN
     Indication: Hypertension
     Dosage: UNK, ONE AT 7AM
     Route: 048
  2. ISOSORBIDE [Suspect]
     Active Substance: ISOSORBIDE
     Indication: Hypertension
     Dosage: UNK

REACTIONS (1)
  - Productive cough [Not Recovered/Not Resolved]
